FAERS Safety Report 7157556-8 (Version None)
Quarter: 2010Q4

REPORT INFORMATION
  Report Type: 
  Country: None (occurrence: None)
  Receive Date: 20101214
  Receipt Date: 20100223
  Transmission Date: 20110411
  Serious: No
  Sender: FDA-Public Use
  Company Number: US-ASTRAZENECA-2010SE07882

PATIENT
  Sex: Male
  Weight: 91.2 kg

DRUGS (3)
  1. CRESTOR [Suspect]
     Indication: BLOOD CHOLESTEROL
     Route: 048
     Dates: start: 20080101
  2. PLAVIX [Concomitant]
  3. ZETIA [Concomitant]

REACTIONS (1)
  - FEELING ABNORMAL [None]
